FAERS Safety Report 10243052 (Version 1)
Quarter: 2014Q2

REPORT INFORMATION
  Report Type: Spontaneous
  Country: DE (occurrence: None)
  Receive Date: 20140613
  Receipt Date: 20140613
  Transmission Date: 20141212
  Serious: Yes (Hospitalization, Other)
  Sender: FDA-Public Use
  Company Number: SYM-2014-21870

PATIENT
  Age: 41 Year
  Sex: Male

DRUGS (2)
  1. BUPROPION (BUPROPION) [Suspect]
     Indication: DEPRESSION
  2. VENLAFAXINE (VENLAFAXINE) [Suspect]
     Indication: DEPRESSION

REACTIONS (6)
  - Suicidal ideation [None]
  - Depression [None]
  - Dysthymic disorder [None]
  - Sexual dysfunction [None]
  - Status epilepticus [None]
  - Major depression [None]
